FAERS Safety Report 20159789 (Version 1)
Quarter: 2021Q4

REPORT INFORMATION
  Report Type: Other
  Country: US (occurrence: US)
  Receive Date: 20211208
  Receipt Date: 20211208
  Transmission Date: 20220303
  Serious: Yes (Other)
  Sender: FDA-Public Use
  Company Number: US-BoehringerIngelheim-2021-BI-140688

PATIENT
  Sex: Male
  Weight: 3.56 kg

DRUGS (3)
  1. ALTEPLASE [Suspect]
     Active Substance: ALTEPLASE
     Indication: Myocardial infarction
     Dosage: THREE DOSES OF RTPA (0.1 MG/KG/DOSE) WERE INFUSED INTO THE LMCA OSTIUM OVER 5 MINUTES
     Route: 065
  2. ALTEPLASE [Suspect]
     Active Substance: ALTEPLASE
     Dosage: SYSTEMIC RTPA AT 0.02MG/ KG/H
     Route: 065
  3. ALTEPLASE [Suspect]
     Active Substance: ALTEPLASE
     Dosage: GRADUALLY INCREASED TO 0.04MG/KG/HR FOR 12 HOURS ALTERNATING WITH NON-FRACTIONATED HEPARIN INFUSION
     Route: 065

REACTIONS (3)
  - Arterial thrombosis [Unknown]
  - Feeding intolerance [Unknown]
  - Haemoptysis [Unknown]
